FAERS Safety Report 4328417-4 (Version None)
Quarter: 2004Q1

REPORT INFORMATION
  Report Type: 
  Country: None (occurrence: None)
  Receive Date: 20040324
  Receipt Date: 20030219
  Transmission Date: 20041129
  Serious: Yes (Hospitalization)
  Sender: FDA-Public Use
  Company Number: K200300376

PATIENT
  Sex: Male

DRUGS (1)
  1. ALTACE [Suspect]

REACTIONS (1)
  - PANCREATITIS [None]
